FAERS Safety Report 22847101 (Version 2)
Quarter: 2024Q1

REPORT INFORMATION
  Report Type: Other
  Country: US (occurrence: None)
  Receive Date: 20230822
  Receipt Date: 20240311
  Transmission Date: 20240410
  Serious: Yes (Hospitalization, Other)
  Sender: FDA-Public Use
  Company Number: US-ROCHE-2661550

PATIENT
  Age: 64 Year
  Sex: Female
  Weight: 72.64 kg

DRUGS (13)
  1. OCREVUS [Suspect]
     Active Substance: OCRELIZUMAB
     Indication: Secondary progressive multiple sclerosis
     Route: 042
     Dates: start: 20170615
  2. OCREVUS [Suspect]
     Active Substance: OCRELIZUMAB
     Indication: Relapsing multiple sclerosis
     Route: 042
     Dates: end: 202304
  3. COPAXONE [Concomitant]
     Active Substance: GLATIRAMER ACETATE
  4. AUBAGIO [Concomitant]
     Active Substance: TERIFLUNOMIDE
  5. ELAVIL [AMITRIPTYLINE] [Concomitant]
     Route: 048
  6. CARBAMAZEPINE [Concomitant]
     Active Substance: CARBAMAZEPINE
     Route: 048
  7. ZYRTEC [Concomitant]
     Active Substance: CETIRIZINE HYDROCHLORIDE
  8. VITAMIN D3 [Concomitant]
     Active Substance: CHOLECALCIFEROL
     Route: 048
  9. IBUPROFEN [Concomitant]
     Active Substance: IBUPROFEN
  10. MYRBETRIQ [Concomitant]
     Active Substance: MIRABEGRON
  11. MIRALAX [Concomitant]
     Active Substance: POLYETHYLENE GLYCOL 3350
  12. VESICARE [Concomitant]
     Active Substance: SOLIFENACIN SUCCINATE
  13. ZANAFLEX [Concomitant]
     Active Substance: TIZANIDINE HYDROCHLORIDE

REACTIONS (22)
  - Urinary tract infection [Recovered/Resolved]
  - Off label use [Unknown]
  - Ophthalmoplegia [Unknown]
  - T-lymphocyte count increased [Unknown]
  - CD4 lymphocytes increased [Unknown]
  - CD8 lymphocytes decreased [Unknown]
  - Lymphopenia [Unknown]
  - Pneumonia [Recovered/Resolved]
  - Cystitis [Not Recovered/Not Resolved]
  - Full blood count abnormal [Unknown]
  - Immunosuppression [Unknown]
  - General physical health deterioration [Not Recovered/Not Resolved]
  - Asthenia [Not Recovered/Not Resolved]
  - CD19 lymphocytes decreased [Unknown]
  - Natural killer cell count decreased [Unknown]
  - Red blood cell count decreased [Unknown]
  - Haemoglobin decreased [Unknown]
  - Haematocrit decreased [Unknown]
  - Lymphocyte count decreased [Unknown]
  - Blood alkaline phosphatase increased [Unknown]
  - Blood chloride decreased [Unknown]
  - Blood creatinine decreased [Unknown]

NARRATIVE: CASE EVENT DATE: 20190101
